FAERS Safety Report 8192695-4 (Version None)
Quarter: 2012Q1

REPORT INFORMATION
  Report Type: 
  Country: None (occurrence: None)
  Receive Date: 20120308
  Receipt Date: 20120305
  Transmission Date: 20120608
  Serious: Yes (Hospitalization, Disabling, Other)
  Sender: FDA-Public Use
  Company Number: GB-BAYER-2012-022295

PATIENT
  Sex: Male

DRUGS (9)
  1. NEXAVAR [Suspect]
     Indication: HEPATIC NEOPLASM MALIGNANT
     Dosage: 600 MG, QD
     Route: 048
     Dates: start: 20111121, end: 20111127
  2. NEXAVAR [Suspect]
     Dosage: 400 MG, QOD
     Route: 048
     Dates: start: 20120109, end: 20120114
  3. AMLODIPINE [Concomitant]
     Dosage: 10 MG, UNK
     Route: 048
  4. LACTULOSE [Concomitant]
     Indication: CONSTIPATION
     Dosage: 20 ML, QD
  5. SPIRONOLACTONE [Concomitant]
     Indication: ASCITES
     Dosage: 100 MG, QD
     Route: 048
  6. DOXAZOSIN MESYLATE [Concomitant]
     Dosage: 4 MG, UNK
     Route: 048
  7. GLICLAZIDE [Concomitant]
     Indication: DIABETES MELLITUS
     Dosage: 80 MG, UNK
  8. FUROSEMIDE [Concomitant]
     Indication: ASCITES
     Dosage: 40 MG, UNK
     Route: 048
  9. RAMIPRIL [Concomitant]
     Indication: HYPERTENSION
     Dosage: 10 MG, UNK
     Route: 048

REACTIONS (1)
  - CONFUSIONAL STATE [None]
